FAERS Safety Report 8945228 (Version 2)
Quarter: 2013Q1

REPORT INFORMATION
  Report Type: Report from Study
  Country: US (occurrence: US)
  Receive Date: 20121205
  Receipt Date: 20130109
  Transmission Date: 20140127
  Serious: Yes (Hospitalization, Other)
  Sender: FDA-Public Use
  Company Number: US-ALEXION-A201202236

PATIENT
  Age: 17 None
  Sex: Male
  Weight: 62 kg

DRUGS (9)
  1. SOLIRIS [Suspect]
     Indication: PAROXYSMAL NOCTURNAL HAEMOGLOBINURIA
     Dosage: 600 MG, QW
     Route: 042
     Dates: start: 20120817, end: 20120907
  2. SOLIRIS [Suspect]
     Indication: OFF LABEL USE
     Dosage: 900 MG, Q2W
     Dates: start: 20120914
  3. LOVENOX [Concomitant]
     Dosage: 40 MG, BID
     Route: 058
  4. FOLIC ACID [Concomitant]
     Dosage: 1 MG, QD
     Route: 048
  5. MULTIVITAMIN [Concomitant]
     Dosage: UNK, QD
     Route: 048
  6. POTASSIUM CHLORIDE [Concomitant]
     Dosage: 24 MEQ, BID
     Route: 048
  7. RANITIDINE [Concomitant]
     Dosage: 150 MG, QD
     Route: 048
  8. SERTRALINE [Concomitant]
     Dosage: 50 MG, QD
     Route: 048
  9. VICODIN [Concomitant]
     Indication: HEADACHE
     Dosage: 1 DF, PRN 5-500 MG DAILY
     Route: 048

REACTIONS (12)
  - Meningococcal sepsis [Recovered/Resolved]
  - Thrombocytopenia [Recovering/Resolving]
  - Blood lactate dehydrogenase increased [Recovered/Resolved]
  - Skin discolouration [Recovered/Resolved]
  - Blood bilirubin increased [Unknown]
  - Hypotension [Recovered/Resolved]
  - Depression [Recovering/Resolving]
  - Migraine [Recovered/Resolved]
  - Anaemia [Not Recovered/Not Resolved]
  - Hypokalaemia [Recovered/Resolved]
  - Diarrhoea [Recovered/Resolved]
  - Off label use [Unknown]
